FAERS Safety Report 4600970-2 (Version None)
Quarter: 2005Q1

REPORT INFORMATION
  Report Type: 
  Country: None (occurrence: None)
  Receive Date: 20050204
  Receipt Date: 20041004
  Transmission Date: 20050727
  Serious: Yes (Hospitalization)
  Sender: FDA-Public Use
  Company Number: PHEH2004US10411

PATIENT
  Age: 48 Year
  Sex: Male

DRUGS (4)
  1. CLOZARIL [Suspect]
     Indication: SCHIZOPHRENIA
     Dosage: 200 MG, QD, ORAL
     Route: 048
     Dates: start: 20040201
  2. GLUCOPHAGE [Concomitant]
  3. INSULIN [Concomitant]
  4. MONOPRIL [Concomitant]

REACTIONS (3)
  - CONFUSIONAL STATE [None]
  - CONVULSION [None]
  - FALL [None]
